FAERS Safety Report 5419380-3 (Version None)
Quarter: 2007Q3

REPORT INFORMATION
  Report Type: 
  Country: None (occurrence: None)
  Receive Date: 20070820
  Receipt Date: 20070810
  Transmission Date: 20080115
  Serious: Yes (Hospitalization)
  Sender: FDA-Public Use
  Company Number: PHHO2007FR13255

PATIENT
  Age: 63 Year
  Sex: Female
  Weight: 64 kg

DRUGS (4)
  1. TAMOXIFEN CITRATE [Suspect]
     Dosage: DOUBLE BLIND
     Route: 048
     Dates: start: 20020626
  2. ZONDAR [Concomitant]
  3. LODINE [Concomitant]
  4. LETROZOLE [Suspect]
     Indication: BREAST CANCER
     Dates: start: 20060201

REACTIONS (2)
  - ARTHRALGIA [None]
  - TENOSYNOVITIS [None]
